FAERS Safety Report 8076873-0 (Version None)
Quarter: 2012Q1

REPORT INFORMATION
  Report Type: 
  Country: None (occurrence: None)
  Receive Date: 20120127
  Receipt Date: 20120123
  Transmission Date: 20120608
  Serious: Yes (Hospitalization, Disabling)
  Sender: FDA-Public Use
  Company Number: US-MERCK-1108USA02812

PATIENT
  Age: 53 Year
  Sex: Female

DRUGS (10)
  1. FOSAMAX [Suspect]
     Indication: OSTEOPOROSIS
     Route: 048
     Dates: start: 19990301, end: 20010201
  2. CALCIUM (UNSPECIFIED) [Concomitant]
     Route: 065
     Dates: start: 20000101
  3. CHOLECALCIFEROL [Concomitant]
     Route: 065
     Dates: start: 20060101
  4. POTASSIUM (UNSPECIFIED) [Concomitant]
     Route: 065
     Dates: start: 19970101
  5. FOSAMAX [Suspect]
     Indication: OSTEOPENIA
     Route: 048
     Dates: start: 19990301, end: 20010201
  6. THYROLAR [Concomitant]
     Route: 065
     Dates: start: 20020101
  7. FOSAMAX [Suspect]
     Route: 048
     Dates: start: 20080401, end: 20100301
  8. ZYRTEC [Concomitant]
     Route: 065
     Dates: start: 20020101, end: 20080101
  9. FOSAMAX [Suspect]
     Route: 048
     Dates: start: 20010201, end: 20080401
  10. FOSAMAX [Suspect]
     Route: 048
     Dates: start: 20010201, end: 20080401

REACTIONS (13)
  - URINARY TRACT INFECTION [None]
  - FEMUR FRACTURE [None]
  - ADVERSE EVENT [None]
  - GINGIVAL DISORDER [None]
  - GASTROOESOPHAGEAL REFLUX DISEASE [None]
  - ASTHMA [None]
  - UTERINE DISORDER [None]
  - HYPERTONIC BLADDER [None]
  - TOOTH DISORDER [None]
  - BLADDER DISORDER [None]
  - FLUID RETENTION [None]
  - BLOOD POTASSIUM DECREASED [None]
  - LOW TURNOVER OSTEOPATHY [None]
